FAERS Safety Report 13974871 (Version 1)
Quarter: 2017Q3

REPORT INFORMATION
  Report Type: Spontaneous
  Country: US (occurrence: US)
  Receive Date: 20170915
  Receipt Date: 20170915
  Transmission Date: 20171128
  Serious: No
  Sender: FDA-Public Use
  Company Number: US-BRAEBURN PHARMACEUTICALS, INC.-2017BBN00042

PATIENT
  Age: 38 Year
  Weight: 68.93 kg

DRUGS (3)
  1. NICOTINE TRANSDERMAL SYSTEM [Concomitant]
     Active Substance: NICOTINE
  2. BUSPAR [Concomitant]
     Active Substance: BUSPIRONE HYDROCHLORIDE
  3. PROBUPHINE [Suspect]
     Active Substance: BUPRENORPHINE HYDROCHLORIDE
     Indication: DRUG USE DISORDER
     Dosage: 4 RODS LEFT UPPER ARM
     Dates: start: 20170518, end: 20170613

REACTIONS (5)
  - Drug ineffective [Unknown]
  - Difficulty removing drug implant [Recovered/Resolved]
  - Withdrawal syndrome [Unknown]
  - Migraine [Recovered/Resolved]
  - Device breakage [Recovered/Resolved]

NARRATIVE: CASE EVENT DATE: 2017
